FAERS Safety Report 15030725 (Version 6)
Quarter: 2018Q4

REPORT INFORMATION
  Report Type: Report from Study
  Country: BR (occurrence: BR)
  Receive Date: 20180619
  Receipt Date: 20181120
  Transmission Date: 20190204
  Serious: Yes (Other)
  Sender: FDA-Public Use
  Company Number: BR-TAKEDA-2017TUS017384

PATIENT
  Age: 67 Year
  Sex: Female

DRUGS (4)
  1. AZATHIOPRINE. [Concomitant]
     Active Substance: AZATHIOPRINE
     Indication: CROHN^S DISEASE
     Dosage: 50 MG, QD
     Route: 048
     Dates: start: 2007
  2. MESALAZINE [Concomitant]
     Active Substance: MESALAMINE
     Dosage: 1 G, UNK
     Route: 054
     Dates: start: 2017
  3. VEDOLIZUMAB [Suspect]
     Active Substance: VEDOLIZUMAB
     Indication: CROHN^S DISEASE
     Dosage: UNK
     Route: 042
     Dates: start: 20170804
  4. MESALAZINE [Concomitant]
     Active Substance: MESALAMINE
     Indication: CROHN^S DISEASE
     Dosage: 500 MG, QD
     Route: 048
     Dates: start: 2007

REACTIONS (17)
  - Frequent bowel movements [Recovered/Resolved]
  - Back pain [Recovering/Resolving]
  - Burning sensation [Recovered/Resolved]
  - Malaise [Recovered/Resolved]
  - Nausea [Recovered/Resolved]
  - Headache [Recovered/Resolved]
  - Pain [Recovered/Resolved]
  - Abdominal discomfort [Recovered/Resolved]
  - Faeces soft [Recovered/Resolved]
  - Somnolence [Recovered/Resolved]
  - Crohn^s disease [Recovered/Resolved]
  - Anal haemorrhage [Recovering/Resolving]
  - Abdominal pain upper [Recovered/Resolved]
  - Weight decreased [Recovering/Resolving]
  - Dizziness [Recovered/Resolved]
  - Diplopia [Recovered/Resolved]
  - Off label use [Unknown]

NARRATIVE: CASE EVENT DATE: 201708
